FAERS Safety Report 7444364-3 (Version None)
Quarter: 2011Q2

REPORT INFORMATION
  Report Type: 
  Country: None (occurrence: None)
  Receive Date: 20110429
  Receipt Date: 20110415
  Transmission Date: 20111010
  Serious: Yes (Hospitalization)
  Sender: FDA-Public Use
  Company Number: FR-JNJFOC-20110407861

PATIENT
  Age: 29 Year
  Sex: Male

DRUGS (7)
  1. REMICADE [Suspect]
     Indication: ANKYLOSING SPONDYLITIS
     Route: 042
  2. POLARAMINE [Concomitant]
     Indication: PREMEDICATION
     Route: 042
  3. PERFALGAN [Concomitant]
     Indication: PREMEDICATION
     Route: 042
  4. REMICADE [Suspect]
     Route: 042
  5. PERFALGAN [Concomitant]
     Route: 042
  6. REMICADE [Suspect]
     Route: 042
  7. POLARAMINE [Concomitant]
     Route: 042

REACTIONS (1)
  - DISSEMINATED TUBERCULOSIS [None]
